FAERS Safety Report 4757075-X (Version None)
Quarter: 2005Q3

REPORT INFORMATION
  Report Type: 
  Country: None (occurrence: None)
  Receive Date: 20050829
  Receipt Date: 20050829
  Transmission Date: 20060218
  Serious: Yes (Other)
  Sender: FDA-Public Use
  Company Number: None

PATIENT
  Age: 50 Year
  Sex: Female
  Weight: 98.2038 kg

DRUGS (2)
  1. GLYCOLAX [Suspect]
     Indication: CONSTIPATION
     Dosage: IN 8 OZ WATER BID
     Dates: start: 20041004
  2. GLYCOLAX [Suspect]
     Indication: IRRITABLE BOWEL SYNDROME
     Dosage: IN 8 OZ WATER BID
     Dates: start: 20041004

REACTIONS (3)
  - DYSPHAGIA [None]
  - DYSPNOEA [None]
  - THERAPEUTIC RESPONSE UNEXPECTED WITH DRUG SUBSTITUTION [None]
